FAERS Safety Report 24764712 (Version 2)
Quarter: 2025Q2

REPORT INFORMATION
  Report Type: Report from Study
  Country: US (occurrence: US)
  Receive Date: 20241223
  Receipt Date: 20250417
  Transmission Date: 20250717
  Serious: Yes (Hospitalization, Other)
  Sender: TEVA
  Company Number: US-TEVA-VS-3277499

PATIENT
  Age: 47 Year
  Sex: Female

DRUGS (1)
  1. AUSTEDO XR [Suspect]
     Active Substance: DEUTETRABENAZINE
     Indication: Tardive dyskinesia
     Route: 065
     Dates: start: 20241209, end: 202503

REACTIONS (2)
  - Mental disorder [Unknown]
  - Road traffic accident [Unknown]

NARRATIVE: CASE EVENT DATE: 20250301
